FAERS Safety Report 19725195 (Version 1)
Quarter: 2021Q3

REPORT INFORMATION
  Report Type: Spontaneous
  Country: US (occurrence: US)
  Receive Date: 20210819
  Receipt Date: 20210819
  Transmission Date: 20211014
  Serious: Yes (Hospitalization, Disabling)
  Sender: FDA-Public Use
  Company Number: None

PATIENT
  Age: 84 Year
  Sex: Female
  Weight: 54.8 kg

DRUGS (10)
  1. CALCIUM CARBONATE 600 MG TABLET [Concomitant]
  2. ENTRECTINIB [Suspect]
     Active Substance: ENTRECTINIB
     Indication: HER2 MUTANT NON-SMALL CELL LUNG CANCER
     Route: 048
     Dates: start: 20210810, end: 20210817
  3. CHOLECALCIFEROL 1000 UNIT TABLET [Concomitant]
  4. ENTRECTINIB [Suspect]
     Active Substance: ENTRECTINIB
     Indication: NON-SMALL CELL LUNG CANCER METASTATIC
     Route: 048
     Dates: start: 20210810, end: 20210817
  5. ALENDRONATE [Concomitant]
     Active Substance: ALENDRONATE SODIUM
  6. AMLODIPINE [Concomitant]
     Active Substance: AMLODIPINE BESYLATE
  7. OXYCODONE 5 MG TABLET [Concomitant]
     Active Substance: OXYCODONE HYDROCHLORIDE
  8. FISH OIL 1200 MG CAPSULE [Concomitant]
  9. SIMVASTATIN 20 MG TABLET [Concomitant]
     Active Substance: SIMVASTATIN
  10. CLOPIDOGREL 75 MG TABLET [Concomitant]

REACTIONS (6)
  - Aphasia [None]
  - Ischaemic stroke [None]
  - Dysarthria [None]
  - Headache [None]
  - Balance disorder [None]
  - Therapy interrupted [None]

NARRATIVE: CASE EVENT DATE: 20210814
